FAERS Safety Report 14642940 (Version 2)
Quarter: 2018Q3

REPORT INFORMATION
  Report Type: Spontaneous
  Country: KR (occurrence: KR)
  Receive Date: 20180315
  Receipt Date: 20180806
  Transmission Date: 20181010
  Serious: Yes (Death, Other)
  Sender: FDA-Public Use
  Company Number: KR-009507513-1803KOR003035

PATIENT

DRUGS (1)
  1. ERTAPENEM SODIUM [Suspect]
     Active Substance: ERTAPENEM SODIUM
     Indication: PYELONEPHRITIS ACUTE

REACTIONS (1)
  - Treatment failure [Fatal]
